FAERS Safety Report 5622550-2 (Version None)
Quarter: 2008Q1

REPORT INFORMATION
  Report Type: 
  Country: None (occurrence: None)
  Receive Date: 20080208
  Receipt Date: 20080208
  Transmission Date: 20080703
  Serious: No
  Sender: FDA-Public Use
  Company Number: None

PATIENT
  Sex: Female

DRUGS (1)
  1. MIRTAZAPINE [Suspect]
     Indication: ANXIETY
     Dosage: 15MG DAILY
     Dates: start: 20071001

REACTIONS (3)
  - FEELING JITTERY [None]
  - GASTRIC DISORDER [None]
  - NERVOUSNESS [None]
